FAERS Safety Report 9181058 (Version 1)
Quarter: 2013Q1

REPORT INFORMATION
  Report Type: Spontaneous
  Country: US (occurrence: US)
  Receive Date: 20130322
  Receipt Date: 20130322
  Transmission Date: 20140127
  Serious: Yes (Other)
  Sender: FDA-Public Use
  Company Number: US-BAYER-2013-033660

PATIENT
  Age: 47 Year
  Sex: Female
  Weight: 87.08 kg

DRUGS (13)
  1. YASMIN [Suspect]
  2. YAZ [Suspect]
     Indication: HOT FLUSH
  3. ALEVE [Concomitant]
     Dosage: UNK
     Route: 048
     Dates: start: 200804
  4. TYLENOL [Concomitant]
     Dosage: UNK
     Route: 048
     Dates: start: 200804
  5. DEPO-MEDROL [Concomitant]
     Dosage: UNK
     Route: 030
     Dates: start: 200804
  6. TORADOL [Concomitant]
     Dosage: UNK
     Route: 048
     Dates: start: 200804
  7. MOBIC [Concomitant]
     Indication: SWELLING
     Dosage: UNK
     Route: 048
     Dates: start: 20080708
  8. ULTRACET [Concomitant]
     Indication: PAIN
     Dosage: UNK
     Route: 048
     Dates: start: 20080708
  9. ZYRTEC-D [Concomitant]
     Dosage: UNK
     Route: 048
     Dates: start: 20080708
  10. HYDROCODONE W/APAP [Concomitant]
     Route: 048
  11. SINGULAIR [Concomitant]
     Dosage: UNK
     Route: 048
     Dates: start: 20080708
  12. CEFUROXIME [Concomitant]
     Dosage: 500 MG, UNK
     Route: 048
  13. PROAIR HFA [Concomitant]
     Dosage: UNK
     Route: 045
     Dates: start: 20080708

REACTIONS (1)
  - Deep vein thrombosis [Recovered/Resolved]
